FAERS Safety Report 7825397-1 (Version None)
Quarter: 2011Q4

REPORT INFORMATION
  Report Type: 
  Country: None (occurrence: None)
  Receive Date: 20111017
  Receipt Date: 20111006
  Transmission Date: 20120403
  Serious: Yes (Other)
  Sender: FDA-Public Use
  Company Number: GB-DEXPHARM-20111470

PATIENT
  Age: 40 Year
  Sex: Male

DRUGS (3)
  1. OMEPRAZOLE [Suspect]
     Dates: start: 20110729
  2. AZITHROMYCIN [Concomitant]
  3. FLUTICASONE PROPIONATE/SALMETEROL [Concomitant]

REACTIONS (2)
  - RASH [None]
  - DIARRHOEA [None]
